FAERS Safety Report 5225401-3 (Version None)
Quarter: 2007Q1

REPORT INFORMATION
  Report Type: 
  Country: None (occurrence: None)
  Receive Date: 20070131
  Receipt Date: 20070122
  Transmission Date: 20070707
  Serious: Yes (Congenital Anomaly, Other)
  Sender: FDA-Public Use
  Company Number: FI-ABBOTT-07P-055-0355556-00

PATIENT
  Sex: Female
  Weight: 2.54 kg

DRUGS (1)
  1. REDUCTIL [Suspect]
     Indication: DRUG EXPOSURE DURING PREGNANCY

REACTIONS (5)
  - ABDOMINAL HERNIA [None]
  - CARDIAC MURMUR [None]
  - FALLOT'S TETRALOGY [None]
  - HYPOGLYCAEMIA [None]
  - TRANSPOSITION OF THE GREAT VESSELS [None]
